FAERS Safety Report 13994334 (Version 1)
Quarter: 2017Q3

REPORT INFORMATION
  Report Type: Spontaneous
  Country: US (occurrence: US)
  Receive Date: 20170920
  Receipt Date: 20170920
  Transmission Date: 20171128
  Serious: No
  Sender: FDA-Public Use
  Company Number: None

PATIENT
  Age: 32 Year
  Sex: Female

DRUGS (1)
  1. POTASSIUM CHLORIDE IN DEXTROSE AND SODIUM CHLORIDE [Suspect]
     Active Substance: DEXTROSE\DEXTROSE MONOHYDRATE\POTASSIUM CHLORIDE\SODIUM CHLORIDE
     Indication: PRODUCT USED FOR UNKNOWN INDICATION
     Dates: start: 20170830, end: 20170830

REACTIONS (2)
  - Product selection error [None]
  - Product label issue [None]

NARRATIVE: CASE EVENT DATE: 20170830
